FAERS Safety Report 10899620 (Version 1)
Quarter: 2015Q1

REPORT INFORMATION
  Report Type: Spontaneous
  Country: FR (occurrence: FR)
  Receive Date: 20150309
  Receipt Date: 20150309
  Transmission Date: 20150721
  Serious: Yes (Death, Other)
  Sender: FDA-Public Use
  Company Number: PHHY2015FR026197

PATIENT
  Age: 18 Year
  Sex: Male

DRUGS (3)
  1. METHYLPREDNISOLONE. [Suspect]
     Active Substance: METHYLPREDNISOLONE
     Indication: MEASLES
     Dosage: 120 MG, UNK
     Route: 065
  2. VITAMIN A [Concomitant]
     Active Substance: VITAMIN A
     Indication: MEASLES
     Dosage: 100000 IU, UNK
     Route: 065
  3. RIBAVIRIN. [Suspect]
     Active Substance: RIBAVIRIN
     Indication: MEASLES
     Dosage: 1225 MG, UNK
     Route: 042

REACTIONS (2)
  - Acute respiratory distress syndrome [Fatal]
  - Intravascular haemolysis [Recovered/Resolved]
